FAERS Safety Report 14223666 (Version 3)
Quarter: 2017Q4

REPORT INFORMATION
  Report Type: Spontaneous
  Country: US (occurrence: US)
  Receive Date: 20171124
  Receipt Date: 20171222
  Transmission Date: 20180321
  Serious: Yes (Hospitalization)
  Sender: FDA-Public Use
  Company Number: US-IPSEN BIOPHARMACEUTICALS, INC.-2017-12137

PATIENT
  Age: 49 Year
  Sex: Female
  Weight: 63.5 kg

DRUGS (6)
  1. DYSPORT [Suspect]
     Active Substance: ABOBOTULINUMTOXINA
     Indication: SKIN WRINKLING
  2. DYSPORT [Suspect]
     Active Substance: ABOBOTULINUMTOXINA
     Indication: SKIN WRINKLING
     Dosage: 55 UNITS
     Route: 065
     Dates: start: 20170928, end: 20170928
  3. RESTYLANE [Suspect]
     Active Substance: HYALURONIC ACID
     Indication: PRODUCT USED FOR UNKNOWN INDICATION
     Dosage: 1 ML
     Route: 065
     Dates: start: 20170928, end: 20170928
  4. VITAMIN D [Concomitant]
     Active Substance: CHOLECALCIFEROL
  5. AVASTIN [Concomitant]
     Active Substance: BEVACIZUMAB
  6. DYSPORT [Suspect]
     Active Substance: ABOBOTULINUMTOXINA
     Indication: OFF LABEL USE

REACTIONS (4)
  - Swelling face [Recovered/Resolved with Sequelae]
  - Localised infection [Recovered/Resolved with Sequelae]
  - Off label use [Unknown]
  - Eye swelling [Recovering/Resolving]

NARRATIVE: CASE EVENT DATE: 201710
